FAERS Safety Report 17114618 (Version 4)
Quarter: 2020Q1

REPORT INFORMATION
  Report Type: Spontaneous
  Country: DE (occurrence: DE)
  Receive Date: 20191205
  Receipt Date: 20200201
  Transmission Date: 20200409
  Serious: Yes (Death, Other)
  Sender: FDA-Public Use
  Company Number: DE-CELLTRION INC.-2019DE027051

PATIENT

DRUGS (8)
  1. RITUXIMAB (UNKNOWN) [Suspect]
     Active Substance: RITUXIMAB
     Indication: CYTOPENIA
  2. DEXAMETHASONE. [Concomitant]
     Active Substance: DEXAMETHASONE
  3. RIBAVIRIN. [Concomitant]
     Active Substance: RIBAVIRIN
     Dosage: UNK
  4. RIBAVIRIN. [Concomitant]
     Active Substance: RIBAVIRIN
     Dosage: 1000 MG, DAILY
  5. IBRUTINIB [Suspect]
     Active Substance: IBRUTINIB
     Indication: CYTOPENIA
  6. BORTEZOMIB. [Concomitant]
     Active Substance: BORTEZOMIB
  7. RITUXIMAB (UNKNOWN) [Suspect]
     Active Substance: RITUXIMAB
     Indication: B-CELL SMALL LYMPHOCYTIC LYMPHOMA
     Dosage: SINGLE INFUSION
     Route: 041
  8. IBRUTINIB [Suspect]
     Active Substance: IBRUTINIB
     Indication: B-CELL SMALL LYMPHOCYTIC LYMPHOMA
     Route: 065

REACTIONS (9)
  - Alanine aminotransferase increased [Fatal]
  - Off label use [Fatal]
  - B-lymphocyte count decreased [Fatal]
  - Pulmonary mycosis [Fatal]
  - Pancytopenia [Fatal]
  - Blood bilirubin increased [Fatal]
  - Intentional product use issue [Fatal]
  - Hepatitis E [Fatal]
  - Transaminases increased [Fatal]
